FAERS Safety Report 5533668-7 (Version None)
Quarter: 2007Q4

REPORT INFORMATION
  Report Type: 
  Country: None (occurrence: None)
  Receive Date: 20071129
  Receipt Date: 20071120
  Transmission Date: 20080405
  Serious: Yes (Death)
  Sender: FDA-Public Use
  Company Number: TCI2007A06333

PATIENT
  Age: 88 Year
  Sex: Female

DRUGS (7)
  1. ACTOS [Suspect]
     Indication: DIABETES MELLITUS
     Dosage: 15 MG (15 MG, 1 D) PER ORAL
     Route: 048
     Dates: start: 20050409, end: 20071117
  2. GASMOTIN (MOSAPRIDE CITRATE) [Concomitant]
  3. BIOFERMIN (LACTOBACILLUS ACIDOPHILUS, BACILLUS SUBTILIS, STREPTOCOCCUS [Concomitant]
  4. CRESTOR [Concomitant]
  5. FRANDOL TAPE (ISOSORBIDE DINITRATE) [Concomitant]
  6. MAGNESIUM OXIDE [Concomitant]
  7. ONEALFA (ALFACALCIDOL) [Concomitant]

REACTIONS (2)
  - ACUTE MYOCARDIAL INFARCTION [None]
  - CARDIAC FAILURE [None]
